FAERS Safety Report 25307926 (Version 1)
Quarter: 2025Q2

REPORT INFORMATION
  Report Type: Spontaneous
  Country: US (occurrence: US)
  Receive Date: 20250513
  Receipt Date: 20250513
  Transmission Date: 20250717
  Serious: No
  Sender: NOVARTIS
  Company Number: US-002147023-NVSC2025US075161

PATIENT
  Age: 25 Year
  Sex: Male

DRUGS (3)
  1. FABHALTA [Suspect]
     Active Substance: IPTACOPAN HYDROCHLORIDE
     Indication: IgA nephropathy
     Dosage: 200 MG, BID
     Route: 048
  2. FILSPARI [Concomitant]
     Active Substance: SPARSENTAN
     Indication: Product used for unknown indication
     Route: 065
  3. ACTHAR [Concomitant]
     Active Substance: CORTICOTROPIN
     Indication: Product used for unknown indication
     Route: 065

REACTIONS (4)
  - Blood triglycerides increased [Unknown]
  - Blood cholesterol increased [Unknown]
  - Fatigue [Unknown]
  - Off label use [Unknown]
